FAERS Safety Report 5896709-3 (Version None)
Quarter: 2008Q3

REPORT INFORMATION
  Report Type: 
  Country: None (occurrence: None)
  Receive Date: 20080924
  Receipt Date: 20080909
  Transmission Date: 20090109
  Serious: Yes (Hospitalization)
  Sender: FDA-Public Use
  Company Number: DE-GENENTECH-268169

PATIENT

DRUGS (3)
  1. AVASTIN [Suspect]
     Indication: COLORECTAL CANCER METASTATIC
  2. XELODA [Suspect]
     Indication: COLORECTAL CANCER METASTATIC
  3. OXALIPLATIN [Suspect]
     Indication: COLORECTAL CANCER METASTATIC

REACTIONS (2)
  - NEUTROPHIL COUNT INCREASED [None]
  - PYREXIA [None]
